FAERS Safety Report 22522657 (Version 2)
Quarter: 2023Q2

REPORT INFORMATION
  Report Type: Report from Study
  Country: US (occurrence: US)
  Receive Date: 20230605
  Receipt Date: 20230606
  Transmission Date: 20230722
  Serious: No
  Sender: FDA-Public Use
  Company Number: US-002147023-NVSC2023US126044

PATIENT
  Sex: Female
  Weight: 89.81 kg

DRUGS (9)
  1. COSENTYX [Suspect]
     Active Substance: SECUKINUMAB
     Indication: Psoriasis
     Dosage: UNK
     Route: 065
  2. BETAMETHASONE DIPROPIONATE [Suspect]
     Active Substance: BETAMETHASONE DIPROPIONATE
     Indication: Psoriasis
     Dosage: UNK
     Route: 065
  3. BUPROPION [Suspect]
     Active Substance: BUPROPION
     Indication: Psoriasis
     Dosage: UNK
     Route: 065
  4. VALSARTAN [Suspect]
     Active Substance: VALSARTAN
     Indication: Psoriasis
     Dosage: UNK
     Route: 065
  5. CELECOXIB [Suspect]
     Active Substance: CELECOXIB
     Indication: Psoriasis
     Dosage: UNK
     Route: 065
  6. FLUOXETINE [Suspect]
     Active Substance: FLUOXETINE HYDROCHLORIDE
     Indication: Psoriasis
     Dosage: UNK
     Route: 065
  7. METOPROLOL SUCCINATE [Suspect]
     Active Substance: METOPROLOL SUCCINATE
     Indication: Psoriasis
     Dosage: UNK
     Route: 065
  8. SPIRONOLACTONE [Suspect]
     Active Substance: SPIRONOLACTONE
     Indication: Psoriasis
     Dosage: UNK
     Route: 065
  9. TAMOXIFEN [Suspect]
     Active Substance: TAMOXIFEN
     Indication: Psoriasis
     Dosage: UNK
     Route: 065

REACTIONS (11)
  - Sebaceous hyperplasia [Unknown]
  - Telangiectasia [Unknown]
  - Hypertrophic scar [Unknown]
  - Keloid scar [Unknown]
  - Psoriasis [Unknown]
  - Skin lesion [Unknown]
  - Dry skin [Unknown]
  - Skin plaque [Unknown]
  - Scar [Unknown]
  - Product use in unapproved indication [Unknown]
  - Drug ineffective [Unknown]
